FAERS Safety Report 8140720-9 (Version None)
Quarter: 2012Q1

REPORT INFORMATION
  Report Type: 
  Country: None (occurrence: None)
  Receive Date: 20120216
  Receipt Date: 20120208
  Transmission Date: 20120608
  Serious: Yes (Other)
  Sender: FDA-Public Use
  Company Number: US-US-EMD SERONO, INC.-235660K09USA

PATIENT
  Sex: Female

DRUGS (4)
  1. REBIF [Suspect]
     Indication: MULTIPLE SCLEROSIS
     Route: 058
     Dates: start: 20080722
  2. FAMVIR [Concomitant]
  3. VITAMIN D [Concomitant]
  4. TREXIMET [Concomitant]
     Indication: MIGRAINE

REACTIONS (2)
  - POLLAKIURIA [None]
  - EPILEPSY [None]
